FAERS Safety Report 10228369 (Version 1)
Quarter: 2014Q2

REPORT INFORMATION
  Report Type: Spontaneous
  Country: US (occurrence: None)
  Receive Date: 20140505
  Receipt Date: 20140505
  Transmission Date: 20141212
  Serious: No
  Sender: FDA-Public Use
  Company Number: US-014868

PATIENT
  Age: 70 Year
  Sex: Female
  Weight: 68.04 kg

DRUGS (1)
  1. PICO-SALAX (NOT SPECIFIED) [Suspect]
     Indication: BOWEL PREPARATION
     Dosage: 1ST DOSE EARLY EVENING; 2ND DOSE 11 PM)
     Route: 048
     Dates: start: 20140216, end: 20140216

REACTIONS (1)
  - Drug ineffective [None]
